FAERS Safety Report 19728379 (Version 1)
Quarter: 2021Q3

REPORT INFORMATION
  Report Type: Spontaneous
  Country: US (occurrence: US)
  Receive Date: 20210820
  Receipt Date: 20210820
  Transmission Date: 20211014
  Serious: Yes (Other)
  Sender: FDA-Public Use
  Company Number: US-EDENBRIDGE PHARMACEUTICALS, LLC-US-2021EDE000040

PATIENT

DRUGS (3)
  1. IVERMECTIN. [Suspect]
     Active Substance: IVERMECTIN
     Dosage: UNK
  2. IVERMECTIN. [Suspect]
     Active Substance: IVERMECTIN
     Dosage: UNK
  3. IVERMECTIN. [Suspect]
     Active Substance: IVERMECTIN
     Indication: PRODUCT USED FOR UNKNOWN INDICATION
     Dosage: UNK, BIWEEKLY OR THEREABOUTS

REACTIONS (4)
  - Paralysis [Not Recovered/Not Resolved]
  - Fear [Not Recovered/Not Resolved]
  - Toxicity to various agents [Unknown]
  - Emotional distress [Not Recovered/Not Resolved]
